FAERS Safety Report 13047418 (Version 1)
Quarter: 2016Q4

REPORT INFORMATION
  Report Type: Spontaneous
  Country: US (occurrence: US)
  Receive Date: 20161220
  Receipt Date: 20161220
  Transmission Date: 20170207
  Serious: Yes (Hospitalization, Other)
  Sender: FDA-Public Use
  Company Number: US-MEDA-2016120019

PATIENT
  Sex: Female

DRUGS (1)
  1. SOMA [Suspect]
     Active Substance: CARISOPRODOL

REACTIONS (4)
  - Neoplasm malignant [Not Recovered/Not Resolved]
  - Cardiac operation [Unknown]
  - Spinal operation [Unknown]
  - Anaphylactic reaction [Recovered/Resolved]
